FAERS Safety Report 9469986 (Version 1)
Quarter: 2013Q3

REPORT INFORMATION
  Report Type: Spontaneous
  Country: US (occurrence: US)
  Receive Date: 20130822
  Receipt Date: 20130822
  Transmission Date: 20140515
  Serious: Yes (Hospitalization, Other)
  Sender: FDA-Public Use
  Company Number: US-NOVOPROD-385382

PATIENT
  Age: 62 Year
  Sex: Female

DRUGS (1)
  1. NOVOLOG FLEXPEN [Suspect]
     Indication: TYPE 1 DIABETES MELLITUS
     Dosage: UNK
     Route: 058

REACTIONS (3)
  - Pancreatic carcinoma [Unknown]
  - Device malfunction [Unknown]
  - Blood glucose increased [Unknown]
